FAERS Safety Report 24697041 (Version 1)
Quarter: 2024Q4

REPORT INFORMATION
  Report Type: Spontaneous
  Country: EG (occurrence: EG)
  Receive Date: 20241204
  Receipt Date: 20241204
  Transmission Date: 20250114
  Serious: Yes (Hospitalization, Other)
  Sender: PFIZER
  Company Number: EG-PFIZER INC-PV202400155502

PATIENT
  Age: 42 Year
  Sex: Female

DRUGS (2)
  1. CARBOPLATIN [Suspect]
     Active Substance: CARBOPLATIN
     Dosage: 551 MG/D1/EVERY 28 DAY (CYCLE 5)
     Route: 042
     Dates: start: 20241015
  2. PACLITAXEL [Suspect]
     Active Substance: PACLITAXEL
     Dosage: 136 MG/WEEKLY /EVERY 28 DAYS (WEEK 2 OF INTAXEL)
     Dates: start: 20241022

REACTIONS (5)
  - Pancytopenia [Recovered/Resolved]
  - Leukopenia [Recovered/Resolved]
  - Neutropenia [Recovered/Resolved]
  - Anaemia [Recovered/Resolved]
  - Thrombocytopenia [Recovered/Resolved]

NARRATIVE: CASE EVENT DATE: 20241029
